FAERS Safety Report 7423303-5 (Version None)
Quarter: 2011Q2

REPORT INFORMATION
  Report Type: 
  Country: None (occurrence: None)
  Receive Date: 20110419
  Receipt Date: 20110404
  Transmission Date: 20111010
  Serious: Yes (Hospitalization)
  Sender: FDA-Public Use
  Company Number: BR-ROCHE-768923

PATIENT
  Age: 12 Year
  Sex: Male

DRUGS (7)
  1. MYCOPHENOLATE MOFETIL [Suspect]
     Indication: PROPHYLAXIS AGAINST GRAFT VERSUS HOST DISEASE
     Route: 065
  2. CYCLOPHOSPHAMIDE [Concomitant]
  3. OSELTAMIVIR [Suspect]
     Indication: H1N1 INFLUENZA
     Dosage: FOR 10 DAYS
     Route: 065
  4. OSELTAMIVIR [Suspect]
     Dosage: DOSE INCREASED.
     Route: 065
  5. CYCLOSPORINE [Suspect]
     Indication: PROPHYLAXIS AGAINST GRAFT VERSUS HOST DISEASE
     Route: 065
  6. FLUDARABINE [Concomitant]
  7. OSELTAMIVIR [Suspect]
     Dosage: RESTARTED
     Route: 065

REACTIONS (4)
  - DRUG INEFFECTIVE [None]
  - H1N1 INFLUENZA [None]
  - ASPERGILLOSIS [None]
  - ACUTE RESPIRATORY DISTRESS SYNDROME [None]
